FAERS Safety Report 21756981 (Version 2)
Quarter: 2023Q1

REPORT INFORMATION
  Report Type: Report from Study
  Country: FR (occurrence: None)
  Receive Date: 20221220
  Receipt Date: 20230126
  Transmission Date: 20230418
  Serious: Yes (Death, Hospitalization)
  Sender: FDA-Public Use
  Company Number: 2022A407796

PATIENT
  Age: 861 Month
  Sex: Male
  Weight: 72 kg

DRUGS (1)
  1. EVUSHELD [Suspect]
     Active Substance: CILGAVIMAB\TIXAGEVIMAB
     Indication: COVID-19 prophylaxis
     Dosage: 300 MG (TIXAGEVIMAB 150 MG/ CILGAVIMAB 150 MG) ? 1ST DOSE, ONCE/SINGLE ADMINISTRATION
     Route: 030
     Dates: start: 20220310, end: 20220310

REACTIONS (2)
  - Pseudomonas infection [Fatal]
  - Asymptomatic COVID-19 [Unknown]

NARRATIVE: CASE EVENT DATE: 20221202
